FAERS Safety Report 19645401 (Version 1)
Quarter: 2021Q3

REPORT INFORMATION
  Report Type: Spontaneous
  Country: FR (occurrence: FR)
  Receive Date: 20210802
  Receipt Date: 20210802
  Transmission Date: 20211014
  Serious: Yes (Other)
  Sender: FDA-Public Use
  Company Number: FR-VELOXIS PHARMACEUTICALS-2021VELFR-000188

PATIENT
  Age: 28 Year
  Sex: Female

DRUGS (12)
  1. ENVARSUS XR [Suspect]
     Active Substance: TACROLIMUS
     Indication: CHRONIC GRAFT VERSUS HOST DISEASE IN SKIN
     Dosage: UNK
     Route: 065
  2. IMATINIB. [Suspect]
     Active Substance: IMATINIB MESYLATE
     Indication: ACUTE BIPHENOTYPIC LEUKAEMIA
     Dosage: UNK
     Route: 065
  3. METHOTREXATE. [Suspect]
     Active Substance: METHOTREXATE
     Indication: CHRONIC GRAFT VERSUS HOST DISEASE IN SKIN
     Dosage: UNK
  4. ENVARSUS XR [Suspect]
     Active Substance: TACROLIMUS
     Indication: ACUTE BIPHENOTYPIC LEUKAEMIA
     Dosage: UNK
     Route: 065
  5. MYCOPHENOLATE MOFETIL. [Suspect]
     Active Substance: MYCOPHENOLATE MOFETIL
     Indication: CHRONIC GRAFT VERSUS HOST DISEASE IN SKIN
     Dosage: UNK
     Route: 065
  6. IMATINIB. [Suspect]
     Active Substance: IMATINIB MESYLATE
     Indication: CHRONIC GRAFT VERSUS HOST DISEASE IN SKIN
     Dosage: UNK
     Route: 065
  7. RITUXIMAB. [Suspect]
     Active Substance: RITUXIMAB
     Indication: CHRONIC GRAFT VERSUS HOST DISEASE IN SKIN
     Dosage: UNK
     Route: 065
  8. PREDNISONE. [Suspect]
     Active Substance: PREDNISONE
     Indication: CHRONIC GRAFT VERSUS HOST DISEASE IN SKIN
     Dosage: 50 MILLIGRAM, QD
     Route: 048
  9. RITUXIMAB. [Suspect]
     Active Substance: RITUXIMAB
     Indication: ACUTE BIPHENOTYPIC LEUKAEMIA
     Dosage: UNK
     Route: 065
  10. METHOTREXATE. [Suspect]
     Active Substance: METHOTREXATE
     Indication: ACUTE BIPHENOTYPIC LEUKAEMIA
  11. PREDNISONE. [Suspect]
     Active Substance: PREDNISONE
     Indication: ACUTE BIPHENOTYPIC LEUKAEMIA
     Dosage: 25 MILLIGRAM, QD
     Route: 048
  12. MYCOPHENOLATE MOFETIL. [Suspect]
     Active Substance: MYCOPHENOLATE MOFETIL
     Indication: ACUTE BIPHENOTYPIC LEUKAEMIA
     Dosage: UNK
     Route: 065

REACTIONS (6)
  - Obliterative bronchiolitis [Recovered/Resolved]
  - Therapy non-responder [Unknown]
  - Dry eye [Recovered/Resolved]
  - Chronic graft versus host disease [Recovered/Resolved]
  - Off label use [Unknown]
  - Chronic graft versus host disease in skin [Recovered/Resolved]
